FAERS Safety Report 5329859-0 (Version None)
Quarter: 2007Q2

REPORT INFORMATION
  Report Type: 
  Country: None (occurrence: None)
  Receive Date: 20070517
  Receipt Date: 20070517
  Transmission Date: 20071010
  Serious: Yes (Hospitalization)
  Sender: FDA-Public Use
  Company Number: None

PATIENT
  Sex: Male
  Weight: 54.8 kg

DRUGS (3)
  1. FLUOROURACIL [Suspect]
     Indication: LARYNGEAL CANCER
     Dosage: 600 MG/M2 IV QD
     Route: 042
     Dates: start: 20070415, end: 20070420
  2. HYDREA [Suspect]
     Indication: LARYNGEAL CANCER
     Dosage: 500 MG PO BID
     Route: 048
     Dates: start: 20070415, end: 20070420
  3. CETUXIMAB [Suspect]
     Dosage: 250 MG/M2 IV 6 HRS
     Route: 042
     Dates: start: 20070423

REACTIONS (5)
  - BLOOD CULTURE POSITIVE [None]
  - PRODUCTIVE COUGH [None]
  - PYREXIA [None]
  - SPUTUM ABNORMAL [None]
  - STAPHYLOCOCCAL BACTERAEMIA [None]
